FAERS Safety Report 17659076 (Version 1)
Quarter: 2020Q2

REPORT INFORMATION
  Report Type: Spontaneous
  Country: US (occurrence: US)
  Receive Date: 20200413
  Receipt Date: 20200413
  Transmission Date: 20200713
  Serious: No
  Sender: FDA-Public Use
  Company Number: US-BION-007833

PATIENT
  Age: 2 Year
  Sex: Female

DRUGS (1)
  1. ALEVE [Suspect]
     Active Substance: NAPROXEN SODIUM
     Route: 048
     Dates: start: 20190226, end: 20190226

REACTIONS (1)
  - Accidental exposure to product by child [Not Recovered/Not Resolved]

NARRATIVE: CASE EVENT DATE: 20190226
